FAERS Safety Report 12100947 (Version 1)
Quarter: 2016Q1

REPORT INFORMATION
  Report Type: Spontaneous
  Country: JP (occurrence: JP)
  Receive Date: 20160222
  Receipt Date: 20160222
  Transmission Date: 20160526
  Serious: Yes (Other)
  Sender: FDA-Public Use
  Company Number: JP-BANPHARM-20164666

PATIENT
  Age: 60 Year
  Sex: Male

DRUGS (1)
  1. VALPROIC ACID UNKNOWN PRODUCT [Suspect]
     Active Substance: VALPROIC ACID
     Indication: LENNOX-GASTAUT SYNDROME
     Dosage: 1400 MG, QD,

REACTIONS (2)
  - Neutrophil Pelger-Huet anomaly present [Recovered/Resolved]
  - Thrombocytopenia [Recovered/Resolved]
